FAERS Safety Report 4338522-4 (Version None)
Quarter: 2004Q2

REPORT INFORMATION
  Report Type: 
  Country: None (occurrence: None)
  Receive Date: 20040414
  Receipt Date: 20040405
  Transmission Date: 20050107
  Serious: Yes (Hospitalization)
  Sender: FDA-Public Use
  Company Number: DE-GLAXOSMITHKLINE-D0041635B

PATIENT
  Sex: Male

DRUGS (6)
  1. SULTANOL [Suspect]
     Indication: ASTHMA
  2. THEOPHYLLINE [Concomitant]
     Indication: ASTHMA
  3. PREDNISOLONE [Concomitant]
  4. CORTICOSTEROIDS [Concomitant]
     Indication: ASTHMA
  5. NEUROLEPTIC MEDICATION [Concomitant]
  6. INSULIN [Concomitant]
     Indication: GESTATIONAL DIABETES

REACTIONS (9)
  - BLOOD CORTICOTROPHIN DECREASED [None]
  - BLOOD CORTISOL DECREASED [None]
  - DRUG EXPOSURE DURING PREGNANCY [None]
  - HAEMANGIOMA CONGENITAL [None]
  - HYPOCALCAEMIA [None]
  - NEONATAL DISORDER [None]
  - PREMATURE BABY [None]
  - RESPIRATORY DISORDER [None]
  - TRANSIENT TACHYPNOEA OF THE NEWBORN [None]
